FAERS Safety Report 6978313-9 (Version None)
Quarter: 2010Q3

REPORT INFORMATION
  Report Type: 
  Country: None (occurrence: None)
  Receive Date: 20100913
  Receipt Date: 20100902
  Transmission Date: 20110219
  Serious: Yes (Other)
  Sender: FDA-Public Use
  Company Number: US-BAYER-201019796BCC

PATIENT
  Age: 18 Year
  Sex: Female
  Weight: 66 kg

DRUGS (6)
  1. ALEVE (CAPLET) [Suspect]
     Indication: MYALGIA
     Dosage: TOTAL DAILY DOSE: 660 MG  UNIT DOSE: 220 MG
     Route: 048
     Dates: start: 20100902
  2. ADVIL LIQUI-GELS [Suspect]
     Indication: PRODUCT USED FOR UNKNOWN INDICATION
     Dosage: UNIT DOSE: 1 DF
     Route: 048
     Dates: start: 20100901, end: 20100901
  3. ADVIL LIQUI-GELS [Suspect]
     Dosage: TOTAL DAILY DOSE: 3 DF  UNIT DOSE: 1 DF
     Route: 048
     Dates: start: 20100902
  4. BIRTH CONTROL [Concomitant]
     Route: 065
  5. SPRINTEC [Concomitant]
     Route: 065
  6. ASCORBIC ACID [Concomitant]
     Route: 065

REACTIONS (1)
  - BLOOD URINE PRESENT [None]
